FAERS Safety Report 20933636 (Version 7)
Quarter: 2023Q2

REPORT INFORMATION
  Report Type: Spontaneous
  Country: IN (occurrence: IN)
  Receive Date: 20220608
  Receipt Date: 20230623
  Transmission Date: 20230722
  Serious: Yes (Other)
  Sender: FDA-Public Use
  Company Number: IN-PFIZER INC-202200808007

PATIENT
  Age: 68 Year
  Sex: Female

DRUGS (7)
  1. PALBOCICLIB [Suspect]
     Active Substance: PALBOCICLIB
     Dosage: 21 DAYS ON AND 10 OFF
     Route: 048
     Dates: start: 20210804, end: 202204
  2. PALBOCICLIB [Suspect]
     Active Substance: PALBOCICLIB
     Dosage: 3 WEEKS ON AND 1 WEEK OFF
     Route: 048
  3. PALBOCICLIB [Suspect]
     Active Substance: PALBOCICLIB
     Dosage: 21 DAYS ON AND 10 OFF
  4. BETADINE MOUTHWASH + GARGLE [Concomitant]
     Dosage: UNK, 3X/DAY
  5. CALCIUM CARBONATE [Concomitant]
     Active Substance: CALCIUM CARBONATE
     Dosage: 1 TAB, 1X/DAY
  6. ESENTRA [DENOSUMAB] [Concomitant]
     Dosage: 120 MG, ONCE IN 3 MONTHS
     Route: 058
  7. LETROZOLE [Concomitant]
     Active Substance: LETROZOLE
     Dosage: 2.5 MG, 1X/DAY

REACTIONS (1)
  - Pancytopenia [Unknown]
